FAERS Safety Report 13999307 (Version 4)
Quarter: 2017Q4

REPORT INFORMATION
  Report Type: Report from Study
  Country: JP (occurrence: JP)
  Receive Date: 20170922
  Receipt Date: 20171206
  Transmission Date: 20180321
  Serious: Yes (Hospitalization)
  Sender: FDA-Public Use
  Company Number: JP-PFIZER INC-2017407237

PATIENT
  Age: 57 Year
  Sex: Female
  Weight: 57.2 kg

DRUGS (2)
  1. RHEUMATREX [Concomitant]
     Active Substance: METHOTREXATE SODIUM
     Dosage: 12 MG, WEEKLY
     Route: 048
     Dates: end: 20170823
  2. XELJANZ [Suspect]
     Active Substance: TOFACITINIB CITRATE
     Indication: RHEUMATOID ARTHRITIS
     Dosage: 5 MG, 2X/DAY
     Route: 048
     Dates: start: 20170621, end: 20170823

REACTIONS (1)
  - Herpes zoster oticus [Recovering/Resolving]

NARRATIVE: CASE EVENT DATE: 20170823
